FAERS Safety Report 6405855-7 (Version None)
Quarter: 2009Q4

REPORT INFORMATION
  Report Type: 
  Country: None (occurrence: None)
  Receive Date: 20091019
  Receipt Date: 20091013
  Transmission Date: 20100525
  Serious: Yes (Death, Hospitalization)
  Sender: FDA-Public Use
  Company Number: FO-CELGENEUS-056-21880-09081233

PATIENT
  Sex: Male
  Weight: 76 kg

DRUGS (17)
  1. REVLIMID [Suspect]
     Route: 048
     Dates: start: 20090714, end: 20090806
  2. CERUBIDINE [Suspect]
     Route: 051
     Dates: start: 20090714, end: 20090806
  3. CYTARABINE [Suspect]
     Route: 051
     Dates: start: 20090714, end: 20090806
  4. TAZOCILLINE [Concomitant]
     Indication: INFECTION
     Route: 051
     Dates: start: 20090630, end: 20090806
  5. CIFLOX [Concomitant]
     Indication: INFECTION
     Route: 051
     Dates: start: 20090701, end: 20090806
  6. CIFLOX [Concomitant]
     Route: 051
     Dates: start: 20090630
  7. TOPALGIC SR [Concomitant]
     Indication: DRUG USE FOR UNKNOWN INDICATION
     Route: 065
  8. HYDREA [Concomitant]
     Indication: DRUG USE FOR UNKNOWN INDICATION
     Route: 065
  9. CASPOFUNGIN [Concomitant]
     Indication: ANTIFUNGAL PROPHYLAXIS
     Route: 051
     Dates: start: 20090703, end: 20090806
  10. CASPOFUNGIN [Concomitant]
  11. VANCOMYCIN [Concomitant]
     Indication: INFECTION
     Route: 051
     Dates: start: 20090710, end: 20090806
  12. VANCOMYCIN [Concomitant]
  13. SULFAMETHOXAZOLE [Concomitant]
     Indication: INFECTION
     Route: 048
     Dates: start: 20090719, end: 20090806
  14. TRIMETHOPRIM [Concomitant]
     Indication: INFECTION
     Route: 048
     Dates: start: 20090719, end: 20090806
  15. COTRIM [Concomitant]
     Indication: INFECTION
     Route: 048
     Dates: start: 20090719, end: 20090806
  16. RIVOTRIL [Concomitant]
     Route: 065
     Dates: start: 20090803
  17. HYPNOVEL [Concomitant]
     Route: 065
     Dates: start: 20090803

REACTIONS (6)
  - ACUTE PULMONARY OEDEMA [None]
  - ENTEROCOLITIS INFECTIOUS [None]
  - GASTROINTESTINAL OBSTRUCTION [None]
  - NEUTROPENIA [None]
  - RENAL FAILURE [None]
  - SUBDURAL HAEMATOMA [None]
